FAERS Safety Report 4512555-7 (Version None)
Quarter: 2004Q4

REPORT INFORMATION
  Report Type: 
  Country: None (occurrence: None)
  Receive Date: 20041129
  Receipt Date: 20041119
  Transmission Date: 20050328
  Serious: Yes (Hospitalization)
  Sender: FDA-Public Use
  Company Number: FR-MERCK-0411FRA00087

PATIENT
  Age: 72 Year
  Sex: Male

DRUGS (2)
  1. TIMOPTIC [Suspect]
     Route: 047
     Dates: start: 19970403, end: 20030401
  2. CELIPROLOL HYDROCHLORIDE [Suspect]
     Route: 048
     Dates: start: 20020403, end: 20030401

REACTIONS (7)
  - BLOOD POTASSIUM DECREASED [None]
  - HYPERHIDROSIS [None]
  - MALAISE [None]
  - NAUSEA [None]
  - PALLOR [None]
  - SINUS BRADYCARDIA [None]
  - VOMITING [None]
